FAERS Safety Report 13124115 (Version 1)
Quarter: 2017Q1

REPORT INFORMATION
  Report Type: Spontaneous
  Country: SG (occurrence: SG)
  Receive Date: 20170118
  Receipt Date: 20170118
  Transmission Date: 20170428
  Serious: Yes (Death, Other)
  Sender: FDA-Public Use
  Company Number: SG-SUN PHARMACEUTICAL INDUSTRIES LTD-2016R1-128447

PATIENT
  Age: 65 Year
  Sex: Male

DRUGS (4)
  1. METHYLPREDNISOLONE. [Suspect]
     Active Substance: METHYLPREDNISOLONE
     Indication: GRANULOMATOSIS WITH POLYANGIITIS
     Dosage: 500 MG, DAILY FOR 3 DOSES (PULSE INTRAVENOUS)
     Route: 042
  2. RITUXIMAB [Suspect]
     Active Substance: RITUXIMAB
     Indication: GRANULOMATOSIS WITH POLYANGIITIS
     Dosage: UNK
     Route: 042
  3. HYDROCORTISONE. [Suspect]
     Active Substance: HYDROCORTISONE
     Indication: GRANULOMATOSIS WITH POLYANGIITIS
     Dosage: 100 MG, QID
     Route: 065
  4. CYCLOPHOSPHAMIDE. [Suspect]
     Active Substance: CYCLOPHOSPHAMIDE
     Indication: GRANULOMATOSIS WITH POLYANGIITIS
     Dosage: UNK
     Route: 042

REACTIONS (7)
  - Pseudomonas infection [Fatal]
  - Small intestinal haemorrhage [Unknown]
  - Septic shock [Fatal]
  - Cytomegalovirus gastrointestinal infection [Unknown]
  - Multiple-drug resistance [Unknown]
  - Melaena [Unknown]
  - Small intestinal perforation [Unknown]
